FAERS Safety Report 6702721-4 (Version None)
Quarter: 2010Q2

REPORT INFORMATION
  Report Type: 
  Country: None (occurrence: None)
  Receive Date: 20100428
  Receipt Date: 20100413
  Transmission Date: 20101027
  Serious: Yes (Life-Threatening)
  Sender: FDA-Public Use
  Company Number: 571587

PATIENT
  Age: 58 Year
  Sex: Female

DRUGS (2)
  1. PACLITAXEL [Suspect]
     Indication: LUNG NEOPLASM MALIGNANT
     Dosage: 120 MG MILLIGRAM(S), INTRAVENOUS
     Route: 042
     Dates: start: 20100226, end: 20100326
  2. CARBOPLATIN [Concomitant]

REACTIONS (4)
  - BRONCHOSPASM [None]
  - ERYTHEMA [None]
  - HYPERTENSION [None]
  - OXYGEN SATURATION DECREASED [None]
